FAERS Safety Report 8585097-X (Version None)
Quarter: 2012Q3

REPORT INFORMATION
  Report Type: 
  Country: None (occurrence: None)
  Receive Date: 20120810
  Receipt Date: 20120730
  Transmission Date: 20120928
  Serious: Yes (Hospitalization)
  Sender: FDA-Public Use
  Company Number: CN-NOVOPROD-357064

PATIENT
  Age: 72 Year
  Sex: Female

DRUGS (2)
  1. NOVOMIX 30 [Suspect]
     Indication: TYPE 2 DIABETES MELLITUS
     Dosage: 14 U IN THE MORNING, 12 U AT NOON, 12 U IN THE EVENING, 0-15 MINUTES BEFORE EACH MEAL
     Route: 058
  2. HUMULIN R [Concomitant]
     Dosage: 12U MORNING+8U NOON+10U EVENING

REACTIONS (3)
  - VOMITING [None]
  - NAUSEA [None]
  - BLOOD GLUCOSE INCREASED [None]
